FAERS Safety Report 9462047 (Version 1)
Quarter: 2013Q3

REPORT INFORMATION
  Report Type: Spontaneous
  Country: US (occurrence: None)
  Receive Date: 20130815
  Receipt Date: 20130815
  Transmission Date: 20140515
  Serious: Yes (Hospitalization)
  Sender: FDA-Public Use
  Company Number: None

PATIENT
  Age: 54 Year
  Sex: Female
  Weight: 90.7 kg

DRUGS (16)
  1. DICLOFENAC [Suspect]
     Route: 048
  2. CELEBREX [Suspect]
     Route: 048
  3. CLONIDINE [Suspect]
     Route: 048
  4. ULTRAM [Concomitant]
  5. ASPIRIN [Concomitant]
  6. PHENERGAN [Concomitant]
  7. AMITRIPTYLINE [Concomitant]
  8. ALPRAZOLAM [Concomitant]
  9. LISINOPRIL [Concomitant]
  10. FRAVACHOL [Concomitant]
  11. GABAPENTIN [Concomitant]
  12. FLAGYL [Concomitant]
  13. CIPRO [Concomitant]
  14. DIFLUCAN [Concomitant]
  15. PO [Concomitant]
  16. POLYMYXIN B [Concomitant]

REACTIONS (5)
  - Metabolic encephalopathy [None]
  - Dehydration [None]
  - Renal failure acute [None]
  - Diarrhoea [None]
  - Hypotension [None]
